FAERS Safety Report 17395700 (Version 2)
Quarter: 2020Q1

REPORT INFORMATION
  Report Type: Spontaneous
  Country: CN (occurrence: CN)
  Receive Date: 20200210
  Receipt Date: 20200312
  Transmission Date: 20200409
  Serious: Yes (Other)
  Sender: FDA-Public Use
  Company Number: NVSC2020CN032994

PATIENT
  Age: 26 Year
  Sex: Female

DRUGS (5)
  1. METHYLPREDNISOLONE. [Suspect]
     Active Substance: METHYLPREDNISOLONE
     Indication: SYSTEMIC LUPUS ERYTHEMATOSUS
     Dosage: UNK (3 DAY SHOCK THERAPY)
     Route: 065
  2. VITA-D [Suspect]
     Active Substance: CHOLECALCIFEROL
     Indication: SYSTEMIC LUPUS ERYTHEMATOSUS
     Dosage: UNK
     Route: 065
  3. ALFACALCIDOL [Suspect]
     Active Substance: ALFACALCIDOL
     Indication: SYSTEMIC LUPUS ERYTHEMATOSUS
     Dosage: UNK
     Route: 065
  4. PREDNISONE. [Suspect]
     Active Substance: PREDNISONE
     Indication: SYSTEMIC LUPUS ERYTHEMATOSUS
     Dosage: UNK
     Route: 065
  5. HYDROXYCHLOROQUINE [Suspect]
     Active Substance: HYDROXYCHLOROQUINE
     Indication: SYSTEMIC LUPUS ERYTHEMATOSUS
     Dosage: UNK
     Route: 065

REACTIONS (5)
  - Premature delivery [Unknown]
  - Therapy non-responder [Unknown]
  - Placenta praevia [Unknown]
  - Maternal exposure during pregnancy [Unknown]
  - Systemic lupus erythematosus [Unknown]
